FAERS Safety Report 16258212 (Version 1)
Quarter: 2019Q2

REPORT INFORMATION
  Report Type: Report from Study
  Country: US (occurrence: US)
  Receive Date: 20190430
  Receipt Date: 20190430
  Transmission Date: 20190711
  Serious: Yes (Hospitalization, Other)
  Sender: FDA-Public Use
  Company Number: US-ASTRAZENECA-2019SE63411

PATIENT
  Sex: Female

DRUGS (11)
  1. LEVOTHYROXINE. [Concomitant]
     Active Substance: LEVOTHYROXINE
  2. BISOPROLOL [Concomitant]
     Active Substance: BISOPROLOL
  3. HUMALOG [Concomitant]
     Active Substance: INSULIN LISPRO
  4. PRAVASTATIN. [Concomitant]
     Active Substance: PRAVASTATIN
  5. RAMIPRIL. [Concomitant]
     Active Substance: RAMIPRIL
  6. ADVAIR HFA [Concomitant]
     Active Substance: FLUTICASONE PROPIONATE\SALMETEROL XINAFOATE
  7. FASENRA [Suspect]
     Active Substance: BENRALIZUMAB
     Indication: LOWER RESPIRATORY TRACT INFECTION
     Route: 058
  8. IPRATROPIUM [Concomitant]
     Active Substance: IPRATROPIUM
  9. LANTUS [Concomitant]
     Active Substance: INSULIN GLARGINE
  10. SINGULAIR [Concomitant]
     Active Substance: MONTELUKAST SODIUM
  11. XOPENEX [Concomitant]
     Active Substance: LEVALBUTEROL HYDROCHLORIDE

REACTIONS (4)
  - Atrial fibrillation [Recovered/Resolved]
  - Product use in unapproved indication [Unknown]
  - Pulmonary oedema [Recovered/Resolved]
  - Off label use [Unknown]
